FAERS Safety Report 9624164 (Version 6)
Quarter: 2013Q4

REPORT INFORMATION
  Report Type: Report from Study
  Country: CA (occurrence: CA)
  Receive Date: 20131015
  Receipt Date: 20131210
  Transmission Date: 20140711
  Serious: Yes (Death, Hospitalization, Other)
  Sender: FDA-Public Use
  Company Number: CA-ROCHE-1266319

PATIENT
  Age: 48 Year
  Sex: Male
  Weight: 79.4 kg

DRUGS (15)
  1. AVASTIN [Suspect]
     Indication: COLORECTAL CANCER
     Route: 042
  2. AVASTIN [Suspect]
     Indication: METASTASES TO LIVER
     Dosage: START DATE: 05/SEP/2013
     Route: 042
     Dates: end: 20131106
  3. 5-FLUOROURACIL [Suspect]
     Indication: COLORECTAL CANCER
     Route: 065
  4. 5-FLUOROURACIL [Suspect]
     Indication: METASTASES TO LIVER
  5. FOLINIC ACID [Suspect]
     Indication: COLORECTAL CANCER
     Route: 065
  6. FOLINIC ACID [Suspect]
     Indication: METASTASES TO LIVER
  7. OXALIPLATIN [Suspect]
     Indication: COLORECTAL CANCER
     Route: 065
  8. OXALIPLATIN [Suspect]
     Indication: METASTASES TO LIVER
  9. IRINOTECAN [Suspect]
     Indication: COLORECTAL CANCER
     Route: 065
  10. ONDANSETRON [Concomitant]
  11. STEMETIL [Concomitant]
  12. DILAUDID [Concomitant]
  13. PANTOLOC [Concomitant]
  14. IMODIUM [Concomitant]
  15. INNOHEP [Concomitant]

REACTIONS (9)
  - Death [Fatal]
  - Jaundice [Unknown]
  - Portal vein thrombosis [Unknown]
  - Abdominal pain [Unknown]
  - Abdominal distension [Unknown]
  - Pain [Unknown]
  - Disease progression [Unknown]
  - Back pain [Unknown]
  - Nausea [Unknown]
